FAERS Safety Report 13483534 (Version 1)
Quarter: 2017Q2

REPORT INFORMATION
  Report Type: Spontaneous
  Country: US (occurrence: US)
  Receive Date: 20170425
  Receipt Date: 20170425
  Transmission Date: 20170830
  Serious: No
  Sender: FDA-Public Use
  Company Number: None

PATIENT
  Age: 70 Year
  Sex: Male

DRUGS (18)
  1. OCALIVA [Suspect]
     Active Substance: OBETICHOLIC ACID
     Indication: HEPATIC CIRRHOSIS
     Dosage: 5 MG TABLET ONCE DALY BY MOUTH
     Route: 048
     Dates: start: 20170309
  2. ENOXAPARIN [Concomitant]
     Active Substance: ENOXAPARIN
  3. ATORVASTATIN [Concomitant]
     Active Substance: ATORVASTATIN
  4. FLOVENT [Concomitant]
     Active Substance: FLUTICASONE PROPIONATE
  5. MONTELUKAST [Concomitant]
     Active Substance: MONTELUKAST SODIUM
  6. MUPIROCIN OINTMENT [Concomitant]
     Active Substance: MUPIROCIN
  7. CYANOCOBALAM [Concomitant]
  8. SERTRALINE [Concomitant]
     Active Substance: SERTRALINE HYDROCHLORIDE
  9. CEPHALEXIN. [Concomitant]
     Active Substance: CEPHALEXIN
  10. COLCHICINE. [Concomitant]
     Active Substance: COLCHICINE
  11. WARFARIN [Concomitant]
     Active Substance: WARFARIN
  12. OMEPRAZOLE. [Concomitant]
     Active Substance: OMEPRAZOLE
  13. NYSTATIN. [Concomitant]
     Active Substance: NYSTATIN
  14. BENZONATATE. [Concomitant]
     Active Substance: BENZONATATE
  15. FOLIC ACID. [Concomitant]
     Active Substance: FOLIC ACID
  16. METOPROLOL TARTRATE. [Concomitant]
     Active Substance: METOPROLOL TARTRATE
  17. URSODIOL. [Concomitant]
     Active Substance: URSODIOL
  18. VIRTUSSIN [Concomitant]

REACTIONS (1)
  - Dysphonia [None]
